FAERS Safety Report 4595308-3 (Version None)
Quarter: 2005Q1

REPORT INFORMATION
  Report Type: 
  Country: None (occurrence: None)
  Receive Date: 20050223
  Receipt Date: 20050210
  Transmission Date: 20050727
  Serious: Yes (Hospitalization)
  Sender: FDA-Public Use
  Company Number: 212378

PATIENT
  Age: 17 Year
  Sex: Male

DRUGS (3)
  1. NUTROPIN AQ [Suspect]
     Indication: GROWTH HORMONE DEFICIENCY
     Dosage: 0.9 MG, QD, SUBCUTANEOUS
     Route: 058
     Dates: start: 19970311
  2. TYLENOL W/ CODEINE NO. 3 [Concomitant]
  3. MOTRIN [Concomitant]

REACTIONS (17)
  - ANTINUCLEAR ANTIBODY POSITIVE [None]
  - ARTHRALGIA [None]
  - CARDIAC TAMPONADE [None]
  - CARDIOMEGALY [None]
  - COUGH [None]
  - COXSACKIE VIRUS SEROLOGY TEST POSITIVE [None]
  - DISEASE RECURRENCE [None]
  - ELECTROCARDIOGRAM ST SEGMENT ELEVATION [None]
  - HAEMATOCRIT DECREASED [None]
  - HAEMOGLOBIN INCREASED [None]
  - PERICARDIAL EFFUSION [None]
  - PLATELET COUNT INCREASED [None]
  - PYREXIA [None]
  - RESPIRATORY RATE INCREASED [None]
  - SINUS TACHYCARDIA [None]
  - VIRAL PERICARDITIS [None]
  - WHITE BLOOD CELL COUNT INCREASED [None]
